FAERS Safety Report 6466835-9 (Version None)
Quarter: 2009Q4

REPORT INFORMATION
  Report Type: 
  Country: None (occurrence: None)
  Receive Date: 20091202
  Receipt Date: 20091120
  Transmission Date: 20100525
  Serious: Yes (Hospitalization)
  Sender: FDA-Public Use
  Company Number: RO-PFIZER INC-2009190233

PATIENT
  Age: 56 Year
  Sex: Male

DRUGS (2)
  1. STREPTOKINASE [Suspect]
     Indication: THROMBOLYSIS
  2. HEPARIN SODIUM [Suspect]

REACTIONS (9)
  - ANXIETY [None]
  - DYSPNOEA [None]
  - HAEMOGLOBIN DECREASED [None]
  - HEPATIC HAEMATOMA [None]
  - HYPOXIA [None]
  - INTRA-ABDOMINAL HAEMORRHAGE [None]
  - MYOCARDIAL INFARCTION [None]
  - PERITONEAL HAEMORRHAGE [None]
  - THROMBOCYTOPENIA [None]
